FAERS Safety Report 18288821 (Version 3)
Quarter: 2020Q4

REPORT INFORMATION
  Report Type: Report from Study
  Country: US (occurrence: US)
  Receive Date: 20200921
  Receipt Date: 20201223
  Transmission Date: 20210113
  Serious: Yes (Other)
  Sender: FDA-Public Use
  Company Number: US-SHIRE-US202030038

PATIENT
  Age: 62 Year
  Sex: Female

DRUGS (3)
  1. PRIVIGEN [Suspect]
     Active Substance: HUMAN IMMUNOGLOBULIN G
     Indication: PRIMARY IMMUNODEFICIENCY SYNDROME
     Dosage: 130 GRAM
     Route: 065
  2. HUMAN NORMAL IMMUNOGLOBULIN; LIQUID [Suspect]
     Active Substance: HUMAN IMMUNOGLOBULIN G
     Indication: UVEITIS
  3. HUMAN NORMAL IMMUNOGLOBULIN; LIQUID [Suspect]
     Active Substance: HUMAN IMMUNOGLOBULIN G
     Indication: PRIMARY IMMUNODEFICIENCY SYNDROME
     Dosage: 130 GRAM, OVER THE COURSE OF 3 DAYS
     Route: 042

REACTIONS (7)
  - Lyme disease [Unknown]
  - Anaphylactic reaction [Unknown]
  - Arthritis [Unknown]
  - Infusion related reaction [Unknown]
  - Joint dislocation [Unknown]
  - Anaemia [Unknown]
  - Migraine [Unknown]

NARRATIVE: CASE EVENT DATE: 20200914
